FAERS Safety Report 6454093-0 (Version None)
Quarter: 2009Q4

REPORT INFORMATION
  Report Type: 
  Country: None (occurrence: None)
  Receive Date: 20091124
  Receipt Date: 20091110
  Transmission Date: 20100525
  Serious: Yes (Other)
  Sender: FDA-Public Use
  Company Number: US-MYLANLABS-2009S1019612

PATIENT
  Age: 46 Year
  Sex: Male

DRUGS (3)
  1. RISPERIDONE [Suspect]
  2. HALOPERIDOL [Suspect]
     Indication: AGITATION
  3. HALOPERIDOL [Suspect]
     Indication: TACHYCARDIA

REACTIONS (2)
  - ELECTROCARDIOGRAM QT PROLONGED [None]
  - POTENTIATING DRUG INTERACTION [None]
